FAERS Safety Report 9374880 (Version 1)
Quarter: 2013Q2

REPORT INFORMATION
  Report Type: Spontaneous
  Country: US (occurrence: US)
  Receive Date: 20130628
  Receipt Date: 20130628
  Transmission Date: 20140414
  Serious: Yes (Life-Threatening, Other)
  Sender: FDA-Public Use
  Company Number: US-ELI_LILLY_AND_COMPANY-US201306008717

PATIENT
  Age: 70 Year
  Sex: Male

DRUGS (1)
  1. EFFIENT [Suspect]
     Dosage: UNK

REACTIONS (2)
  - Haemorrhage intracranial [Unknown]
  - Cardiogenic shock [Unknown]
